FAERS Safety Report 23717811 (Version 1)
Quarter: 2024Q2

REPORT INFORMATION
  Report Type: Spontaneous
  Country: CA (occurrence: CA)
  Receive Date: 20240408
  Receipt Date: 20240408
  Transmission Date: 20240716
  Serious: Yes (Hospitalization)
  Sender: FDA-Public Use
  Company Number: CA-GTI-000222

PATIENT
  Age: 53 Year
  Sex: Female

DRUGS (1)
  1. PREDNISONE [Suspect]
     Active Substance: PREDNISONE
     Indication: Pulmonary sarcoidosis
     Route: 065

REACTIONS (10)
  - Tracheal injury [Unknown]
  - Respiratory failure [Unknown]
  - Bronchial injury [Unknown]
  - Sepsis [Unknown]
  - Pulmonary tuberculosis [Unknown]
  - Tuberculosis [Unknown]
  - Tracheitis [Unknown]
  - Tracheal ulcer [Unknown]
  - Pulseless electrical activity [Unknown]
  - Pseudodiverticular disease [Unknown]
